FAERS Safety Report 20567690 (Version 2)
Quarter: 2022Q1

REPORT INFORMATION
  Report Type: Report from Study
  Country: JP (occurrence: JP)
  Receive Date: 20220308
  Receipt Date: 20220312
  Transmission Date: 20220424
  Serious: Yes (Life-Threatening, Hospitalization, Other)
  Sender: FDA-Public Use
  Company Number: JP-ONO-2022JP006086

PATIENT
  Sex: Female
  Weight: 66.5 kg

DRUGS (4)
  1. NIVOLUMAB [Suspect]
     Active Substance: NIVOLUMAB
     Indication: Non-small cell lung cancer recurrent
     Dosage: UNK
     Route: 041
     Dates: start: 20210707, end: 20211124
  2. IPILIMUMAB [Suspect]
     Active Substance: IPILIMUMAB
     Indication: Non-small cell lung cancer recurrent
     Dosage: UNK
     Route: 041
     Dates: start: 20210707, end: 20211124
  3. PARAPLATIN [Suspect]
     Active Substance: CARBOPLATIN
     Indication: Non-small cell lung cancer recurrent
     Dosage: UNK
     Route: 065
     Dates: start: 20210707, end: 20210707
  4. PEMETREXED [Suspect]
     Active Substance: PEMETREXED
     Indication: Non-small cell lung cancer recurrent
     Dosage: UNK
     Route: 065
     Dates: start: 20210707, end: 20210707

REACTIONS (8)
  - Peritonitis [Recovered/Resolved]
  - Febrile neutropenia [Recovered/Resolved]
  - Arterial occlusive disease [Recovering/Resolving]
  - Intestinal ischaemia [Unknown]
  - Adrenal insufficiency [Unknown]
  - Large intestine perforation [Unknown]
  - Hypopituitarism [Unknown]
  - Hypotension [Unknown]

NARRATIVE: CASE EVENT DATE: 20210712
